FAERS Safety Report 19698416 (Version 1)
Quarter: 2021Q3

REPORT INFORMATION
  Report Type: Spontaneous
  Country: GB (occurrence: GB)
  Receive Date: 20210813
  Receipt Date: 20210813
  Transmission Date: 20211014
  Serious: Yes (Other)
  Sender: FDA-Public Use
  Company Number: GB-MYLANLABS-2021M1049490

PATIENT
  Age: 59 Year
  Sex: Female
  Weight: 72 kg

DRUGS (5)
  1. SERTRALINE [Suspect]
     Active Substance: SERTRALINE HYDROCHLORIDE
     Indication: ILL-DEFINED DISORDER
     Dosage: 50?100MG
     Route: 048
     Dates: start: 20210702, end: 20210718
  2. FEMOSTON CONTI [Concomitant]
     Active Substance: DYDROGESTERONE\ESTRADIOL
     Indication: ILL-DEFINED DISORDER
     Dosage: UNK
  3. SERTRALINE [Suspect]
     Active Substance: SERTRALINE HYDROCHLORIDE
     Indication: DEPRESSION
  4. SERTRALINE [Suspect]
     Active Substance: SERTRALINE HYDROCHLORIDE
     Indication: ANXIETY
  5. PANTOPRAZOLE [Concomitant]
     Active Substance: PANTOPRAZOLE
     Indication: ILL-DEFINED DISORDER
     Dosage: UNK

REACTIONS (2)
  - Haematemesis [Recovered/Resolved]
  - Oesophageal pain [Recovered/Resolved]

NARRATIVE: CASE EVENT DATE: 20210702
